FAERS Safety Report 12427352 (Version 2)
Quarter: 2016Q2

REPORT INFORMATION
  Report Type: Report from Study
  Country: US (occurrence: US)
  Receive Date: 20160602
  Receipt Date: 20160630
  Transmission Date: 20160815
  Serious: Yes (Other)
  Sender: FDA-Public Use
  Company Number: US-AMGEN-USASL2016069797

PATIENT
  Age: 53 Year
  Sex: Female

DRUGS (2)
  1. ENBREL [Suspect]
     Active Substance: ETANERCEPT
     Indication: PRODUCT USED FOR UNKNOWN INDICATION
     Dosage: UNK
     Route: 065
  2. ENBREL [Suspect]
     Active Substance: ETANERCEPT
     Dosage: UNK
     Route: 065

REACTIONS (8)
  - Therapeutic response decreased [Unknown]
  - Condition aggravated [Unknown]
  - Knee arthroplasty [Unknown]
  - Drug dose omission [Unknown]
  - Dental care [Unknown]
  - C-reactive protein increased [Not Recovered/Not Resolved]
  - Blood cholesterol increased [Unknown]
  - Tooth infection [Unknown]

NARRATIVE: CASE EVENT DATE: 2012
